FAERS Safety Report 6186513-3 (Version None)
Quarter: 2009Q2

REPORT INFORMATION
  Report Type: 
  Country: None (occurrence: None)
  Receive Date: 20090512
  Receipt Date: 20090505
  Transmission Date: 20091009
  Serious: No
  Sender: FDA-Public Use
  Company Number: AU-JNJFOC-20090500900

PATIENT
  Sex: Male
  Weight: 99.9 kg

DRUGS (4)
  1. DURAGESIC-100 [Suspect]
     Route: 062
  2. DURAGESIC-100 [Suspect]
     Dosage: 25+12.5 UG/HR TO MAKE A DOSE OF 37.5 UG/HR
     Route: 062
  3. DURAGESIC-100 [Suspect]
     Indication: BACK PAIN
     Route: 062
  4. DURAGESIC-100 [Suspect]
     Indication: ARTHRALGIA
     Route: 062

REACTIONS (4)
  - BREAKTHROUGH PAIN [None]
  - DEVICE ADHESION ISSUE [None]
  - DRUG WITHDRAWAL SYNDROME [None]
  - WRONG TECHNIQUE IN DRUG USAGE PROCESS [None]
